FAERS Safety Report 17579997 (Version 1)
Quarter: 2020Q1

REPORT INFORMATION
  Report Type: Report from Study
  Country: US (occurrence: US)
  Receive Date: 20200325
  Receipt Date: 20200325
  Transmission Date: 20200409
  Serious: Yes (Hospitalization)
  Sender: FDA-Public Use
  Company Number: US-JNJFOC-20200329436

PATIENT
  Age: 22 Year
  Sex: Female
  Weight: 72.64 kg

DRUGS (1)
  1. INFLIXIMAB, RECOMBINANT [Suspect]
     Active Substance: INFLIXIMAB
     Indication: INFLAMMATORY BOWEL DISEASE
     Route: 042
     Dates: start: 20090511

REACTIONS (1)
  - Intestinal operation [Not Recovered/Not Resolved]

NARRATIVE: CASE EVENT DATE: 202001
